FAERS Safety Report 25949123 (Version 1)
Quarter: 2025Q4

REPORT INFORMATION
  Report Type: Spontaneous
  Country: US (occurrence: US)
  Receive Date: 20251022
  Receipt Date: 20251022
  Transmission Date: 20260118
  Serious: Yes (Other)
  Sender: PFIZER
  Company Number: US-PFIZER INC-PV202500123390

PATIENT
  Age: 25 Year
  Sex: Male

DRUGS (1)
  1. DOXYCYCLINE HYCLATE [Suspect]
     Active Substance: DOXYCYCLINE HYCLATE
     Indication: Confluent and reticulate papillomatosis
     Dosage: 100 MG, 2X/DAY FOR TWO WEEKS

REACTIONS (3)
  - Abdominal discomfort [Unknown]
  - Drug ineffective for unapproved indication [Unknown]
  - Off label use [Unknown]
